FAERS Safety Report 6626529-3 (Version None)
Quarter: 2010Q1

REPORT INFORMATION
  Report Type: 
  Country: None (occurrence: None)
  Receive Date: 20100309
  Receipt Date: 20100309
  Transmission Date: 20100710
  Serious: Yes (Death)
  Sender: FDA-Public Use
  Company Number: None

PATIENT
  Sex: Male

DRUGS (1)
  1. AVASTIN [Suspect]
     Indication: BREAST CANCER
     Dosage: 400 MG EVERY OTHER WEEK IV
     Route: 042
     Dates: start: 20091021, end: 20100308

REACTIONS (1)
  - DEATH [None]
